FAERS Safety Report 24580011 (Version 3)
Quarter: 2024Q4

REPORT INFORMATION
  Report Type: Spontaneous
  Country: FR (occurrence: FR)
  Receive Date: 20241105
  Receipt Date: 20241129
  Transmission Date: 20250115
  Serious: Yes (Death, Other)
  Sender: CELLTRION
  Company Number: FR-ROCHE-3559682

PATIENT

DRUGS (3)
  1. BEVACIZUMAB [Suspect]
     Active Substance: BEVACIZUMAB
     Indication: Non-small cell lung cancer
     Dosage: 15 MG/KG, EVERY 3 WEEKS; ON 18/APR/2024, SHE RECEIVED HER LAST DOSE OF BEVACIZUMAB 625 MG EVERY 3 WE
     Route: 042
     Dates: start: 20240104
  2. PACLITAXEL [Suspect]
     Active Substance: PACLITAXEL
     Indication: Non-small cell lung cancer
     Dosage: 200 MG/M2, EVERY 3 WEEKS; ON 18/APR/2024, SHE RECEIVED HER LAST DOSE OF PACLITAXEL 282 MG EVERY 3 WE
     Route: 042
     Dates: start: 20240104
  3. ATEZOLIZUMAB [Concomitant]
     Active Substance: ATEZOLIZUMAB
     Indication: Non-small cell lung cancer
     Dosage: 1200 MG, EVERY 3 WEEKS; ON 18/APR/2024, SHE RECEIVED LAST ADMINISTRATION OF STUDY TREATMENT
     Dates: start: 20240104

REACTIONS (1)
  - Cerebrovascular accident [Fatal]

NARRATIVE: CASE EVENT DATE: 20240505
